FAERS Safety Report 24944031 (Version 2)
Quarter: 2025Q1

REPORT INFORMATION
  Report Type: Spontaneous
  Country: US (occurrence: US)
  Receive Date: 20250207
  Receipt Date: 20250211
  Transmission Date: 20250408
  Serious: Yes (Other)
  Sender: ELI LILLY AND COMPANY
  Company Number: US-ELI_LILLY_AND_COMPANY-US202502003656

PATIENT
  Age: 61 Year
  Sex: Female

DRUGS (4)
  1. HUMULIN R U-500 [Suspect]
     Active Substance: INSULIN HUMAN
     Indication: Diabetes mellitus
     Route: 065
     Dates: start: 2007
  2. HUMULIN R U-500 [Suspect]
     Active Substance: INSULIN HUMAN
     Indication: Diabetes mellitus
     Route: 065
     Dates: start: 2007
  3. HUMULIN R U-500 [Suspect]
     Active Substance: INSULIN HUMAN
     Route: 065
     Dates: start: 2007
  4. HUMULIN R U-500 [Suspect]
     Active Substance: INSULIN HUMAN
     Route: 065
     Dates: start: 2007

REACTIONS (2)
  - Retinal vascular thrombosis [Unknown]
  - Blindness unilateral [Unknown]
